FAERS Safety Report 9775263 (Version 2)
Quarter: 2014Q1

REPORT INFORMATION
  Report Type: Spontaneous
  Country: US (occurrence: US)
  Receive Date: 20131220
  Receipt Date: 20140318
  Transmission Date: 20141002
  Serious: No
  Sender: FDA-Public Use
  Company Number: US-GALDERMA-US13003130

PATIENT
  Age: 67 Year
  Sex: Male

DRUGS (10)
  1. MIRVASO (BRIMONIDINE) TOPICAL GEL, 0.33% [Suspect]
     Indication: ROSACEA
     Dosage: 0.33%
     Route: 061
     Dates: start: 20130927
  2. METRONIDAZOLE LOTION (METRONIDAZOLE) 0.75% [Concomitant]
     Indication: ROSACEA
     Dosage: 0.75%
     Route: 061
     Dates: start: 20130927
  3. METRONIDAZOLE LOTION (METRONIDAZOLE) 0.75% [Concomitant]
     Dosage: 0.75%
     Route: 061
     Dates: start: 201307, end: 20130927
  4. FINACEA (AZELAIC ACID) [Concomitant]
     Indication: ROSACEA
     Route: 061
     Dates: start: 201307, end: 20130927
  5. FINACEA (AZELAIC ACID) [Concomitant]
     Route: 061
     Dates: start: 20130927
  6. CLARINEX (DESLORATADINE) [Concomitant]
     Indication: SEASONAL ALLERGY
     Route: 048
  7. KETOCONAZOLE SHAMPOO [Concomitant]
     Indication: SKIN DISORDER
     Dosage: 2%
     Route: 061
  8. KETOCONAZOLE SHAMPOO [Concomitant]
     Indication: ROSACEA
  9. KETOCONAZOLE NITRATE [Concomitant]
     Indication: RASH
     Route: 061
  10. DOVE SOAP [Concomitant]
     Indication: THERAPEUTIC SKIN CARE TOPICAL
     Route: 061

REACTIONS (2)
  - Condition aggravated [Recovered/Resolved]
  - Erythema [Recovered/Resolved]
